FAERS Safety Report 11327584 (Version 1)
Quarter: 2015Q3

REPORT INFORMATION
  Report Type: Spontaneous
  Country: SG (occurrence: SG)
  Receive Date: 20150731
  Receipt Date: 20150731
  Transmission Date: 20151125
  Serious: Yes (Hospitalization, Other)
  Sender: FDA-Public Use
  Company Number: PHHY2015SG088436

PATIENT
  Age: 56 Year
  Sex: Male

DRUGS (5)
  1. FLUVOXAMINE [Suspect]
     Active Substance: FLUVOXAMINE
     Indication: BIPOLAR DISORDER
     Route: 065
  2. ENALAPRIL [Interacting]
     Active Substance: ENALAPRIL
     Indication: BIPOLAR DISORDER
     Route: 065
  3. LORAZEPAM. [Concomitant]
     Active Substance: LORAZEPAM
     Indication: BIPOLAR DISORDER
     Route: 065
  4. LITHIUM. [Interacting]
     Active Substance: LITHIUM
     Indication: BIPOLAR DISORDER
     Route: 065
  5. PROPRANOLOL [Concomitant]
     Active Substance: PROPRANOLOL\PROPRANOLOL HYDROCHLORIDE
     Indication: BIPOLAR DISORDER
     Route: 065

REACTIONS (6)
  - Toxicity to various agents [Recovering/Resolving]
  - Hypotension [Recovering/Resolving]
  - Bradycardia [Recovering/Resolving]
  - Poor quality sleep [Recovering/Resolving]
  - Anxiety [Recovering/Resolving]
  - Drug interaction [Recovering/Resolving]
